FAERS Safety Report 6354741-X (Version None)
Quarter: 2009Q3

REPORT INFORMATION
  Report Type: 
  Country: None (occurrence: None)
  Receive Date: 20090914
  Receipt Date: 20090903
  Transmission Date: 20100115
  Serious: Yes (Hospitalization)
  Sender: FDA-Public Use
  Company Number: DE-CELGENEUS-062-21880-09011408

PATIENT
  Sex: Female
  Weight: 70 kg

DRUGS (4)
  1. REVLIMID [Suspect]
     Indication: MULTIPLE MYELOMA
     Route: 048
     Dates: start: 20080917, end: 20081007
  2. REVLIMID [Suspect]
     Route: 048
     Dates: end: 20081111
  3. DEXAMETHASONE [Concomitant]
     Indication: MULTIPLE MYELOMA
     Route: 048
  4. KALINOR [Concomitant]
     Indication: DRUG USE FOR UNKNOWN INDICATION
     Route: 048

REACTIONS (6)
  - ANAEMIA [None]
  - DEHYDRATION [None]
  - HYPONATRAEMIA [None]
  - NEUTROPENIA [None]
  - STOMATITIS [None]
  - URINARY TRACT INFECTION [None]
